FAERS Safety Report 10744499 (Version 3)
Quarter: 2015Q1

REPORT INFORMATION
  Report Type: Spontaneous
  Country: AU (occurrence: None)
  Receive Date: 20150126
  Receipt Date: 20150311
  Transmission Date: 20150721
  Serious: Yes (Hospitalization, Other)
  Sender: FDA-Public Use
  Company Number: KAD201501-000079

PATIENT
  Age: 58 Year
  Sex: Female
  Weight: 77.1 kg

DRUGS (5)
  1. SPIRONOLACTONE. [Concomitant]
     Active Substance: SPIRONOLACTONE
  2. RIBAVIRIN. [Suspect]
     Active Substance: RIBAVIRIN
     Indication: HEPATITIS C
     Route: 048
     Dates: start: 20141118
  3. ABT-450/RITONAVIR/ABT-267 [Suspect]
     Active Substance: OMBITASVIR\PARITAPREVIR\RITONAVIR
     Indication: HEPATITIS C
     Route: 048
     Dates: start: 20141118
  4. ABT 333 (DASABUVIR) [Suspect]
     Active Substance: DASABUVIR
     Indication: HEPATITIS C
     Dosage: 500 MG, 250 MG TWO TIMES A DAY (500 MG), ORAL
     Route: 048
     Dates: start: 20141118, end: 20150210
  5. PROPRANOLOL [Concomitant]
     Active Substance: PROPRANOLOL\PROPRANOLOL HYDROCHLORIDE

REACTIONS (13)
  - Decreased appetite [None]
  - Abdominal pain upper [None]
  - Blood glucose increased [None]
  - Blood albumin decreased [None]
  - Platelet count decreased [None]
  - Pancreatitis [None]
  - Lethargy [None]
  - Haemolysis [None]
  - Biliary colic [None]
  - Blood creatinine increased [None]
  - Blood sodium decreased [None]
  - Cholangitis [None]
  - White blood cell count decreased [None]

NARRATIVE: CASE EVENT DATE: 20150112
